FAERS Safety Report 21641965 (Version 1)
Quarter: 2022Q4

REPORT INFORMATION
  Report Type: Report from Study
  Country: US (occurrence: US)
  Receive Date: 20221125
  Receipt Date: 20221125
  Transmission Date: 20230113
  Serious: No
  Sender: FDA-Public Use
  Company Number: US-ABBVIE-4166437

PATIENT

DRUGS (4)
  1. HUMIRA [Suspect]
     Active Substance: ADALIMUMAB
     Indication: Crohn^s disease
     Route: 058
  2. MODERNA COVID-19 VACCINE [Concomitant]
     Active Substance: ELASOMERAN
     Indication: COVID-19 immunisation
     Dosage: ONCE/FIST DOSE
     Route: 030
     Dates: start: 20210602, end: 20210602
  3. MODERNA COVID-19 VACCINE [Concomitant]
     Active Substance: ELASOMERAN
     Indication: COVID-19 immunisation
     Dosage: ONCE/SECOND DOSE
     Route: 030
     Dates: start: 20210630, end: 20210630
  4. PFIZER-BIONTECH COVID-19 VACCINE [Concomitant]
     Active Substance: TOZINAMERAN
     Indication: COVID-19 immunisation
     Dosage: BOOSTER/THIRD DOSE
     Route: 030
     Dates: start: 20211217, end: 20211217

REACTIONS (2)
  - Gout [Not Recovered/Not Resolved]
  - Chronic kidney disease [Not Recovered/Not Resolved]
